FAERS Safety Report 6788545-0 (Version None)
Quarter: 2010Q2

REPORT INFORMATION
  Report Type: 
  Country: None (occurrence: None)
  Receive Date: 20100623
  Receipt Date: 20080317
  Transmission Date: 20101027
  Serious: No
  Sender: FDA-Public Use
  Company Number: US-PFIZER INC-2008024373

PATIENT
  Sex: Male
  Weight: 72.727 kg

DRUGS (3)
  1. CADUET [Suspect]
     Indication: HYPERTENSION
     Dosage: 5/10MG TDD:5/10MG
  2. CADUET [Suspect]
     Indication: BLOOD CHOLESTEROL INCREASED
  3. ZOLOFT [Concomitant]

REACTIONS (5)
  - DYSPNOEA [None]
  - EYE PAIN [None]
  - FACE OEDEMA [None]
  - SPEECH DISORDER [None]
  - TONGUE DISORDER [None]
